FAERS Safety Report 15225424 (Version 1)
Quarter: 2018Q3

REPORT INFORMATION
  Report Type: Report from Study
  Country: None (occurrence: IE)
  Receive Date: 20180801
  Receipt Date: 20180801
  Transmission Date: 20181010
  Serious: Yes (Hospitalization)
  Sender: FDA-Public Use
  Company Number: IE-BIOVITRUM-2018IE0900

PATIENT
  Age: 71 Year
  Sex: Male

DRUGS (13)
  1. DELTACORTRIL [Concomitant]
     Active Substance: PREDNISOLONE
  2. FORSTEO [Concomitant]
     Active Substance: TERIPARATIDE
  3. RISONATE [Concomitant]
     Active Substance: RISEDRONIC ACID
  4. OXYNORM [Concomitant]
     Active Substance: OXYCODONE HYDROCHLORIDE
     Dosage: Q.D.S
  5. KINERET [Suspect]
     Active Substance: ANAKINRA
     Indication: ACUTE FEBRILE NEUTROPHILIC DERMATOSIS
     Route: 058
     Dates: start: 20180221
  6. PREDNISONE. [Concomitant]
     Active Substance: PREDNISONE
  7. METHOTREXATE. [Concomitant]
     Active Substance: METHOTREXATE
  8. PREGABALIN. [Concomitant]
     Active Substance: PREGABALIN
     Dosage: B.D
  9. CALCICHEW D3 [Concomitant]
     Active Substance: CALCIUM\CHOLECALCIFEROL
     Dosage: 800 UNITS
  10. OMEPRAZOLE. [Concomitant]
     Active Substance: OMEPRAZOLE
  11. PARACETAMOL [Concomitant]
     Active Substance: ACETAMINOPHEN
     Dosage: Q.D.S
  12. COLCHICINE. [Concomitant]
     Active Substance: COLCHICINE
     Dosage: B.D
  13. FOLIC ACID. [Concomitant]
     Active Substance: FOLIC ACID

REACTIONS (1)
  - Lung disorder [Not Recovered/Not Resolved]

NARRATIVE: CASE EVENT DATE: 20180720
